FAERS Safety Report 20040713 (Version 1)
Quarter: 2021Q4

REPORT INFORMATION
  Report Type: Spontaneous
  Country: US (occurrence: None)
  Receive Date: 20211108
  Receipt Date: 20211108
  Transmission Date: 20220303
  Serious: No
  Sender: FDA-Public Use
  Company Number: None

PATIENT
  Age: 21 Year
  Sex: Female

DRUGS (1)
  1. SPIRONOLACTONE [Suspect]
     Active Substance: SPIRONOLACTONE
     Indication: Acne
     Dosage: OTHER QUANTITY : 30 CAPSULE(S);?FREQUENCY : DAILY;?
     Route: 048
     Dates: start: 20210113

REACTIONS (2)
  - Heavy menstrual bleeding [None]
  - Polymenorrhoea [None]

NARRATIVE: CASE EVENT DATE: 20210113
